FAERS Safety Report 8072898-X (Version None)
Quarter: 2012Q1

REPORT INFORMATION
  Report Type: 
  Country: None (occurrence: None)
  Receive Date: 20120126
  Receipt Date: 20120123
  Transmission Date: 20120608
  Serious: Yes (Hospitalization)
  Sender: FDA-Public Use
  Company Number: DE-ABBOTT-11P-062-0872998-00

PATIENT
  Sex: Male
  Weight: 106 kg

DRUGS (6)
  1. ASPIRIN [Concomitant]
     Indication: PRODUCT USED FOR UNKNOWN INDICATION
     Route: 048
  2. MAGNESIUM [Concomitant]
     Indication: PRODUCT USED FOR UNKNOWN INDICATION
     Route: 048
  3. HUMIRA [Suspect]
     Indication: PSORIASIS
     Route: 058
     Dates: start: 20100302, end: 20111014
  4. METFORMIN HCL [Concomitant]
     Indication: DIABETES MELLITUS
     Route: 048
  5. NEBIVOLOL [Concomitant]
     Indication: HYPERTENSION
     Route: 048
  6. HYDROCHLOROTHIAZIDE W/RAMIPRIL [Concomitant]
     Indication: HYPERTENSION
     Dosage: 5 MG/25 MG
     Route: 048

REACTIONS (3)
  - TREMOR [None]
  - ENCEPHALITIS [None]
  - STAPHYLOCOCCAL INFECTION [None]
